FAERS Safety Report 15295488 (Version 1)
Quarter: 2018Q3

REPORT INFORMATION
  Report Type: Spontaneous
  Country: DE (occurrence: DE)
  Receive Date: 20180820
  Receipt Date: 20180820
  Transmission Date: 20181010
  Serious: Yes (Other)
  Sender: FDA-Public Use
  Company Number: PHHY2018DE071157

PATIENT
  Age: 40 Year
  Sex: Female

DRUGS (1)
  1. GILENYA [Suspect]
     Active Substance: FINGOLIMOD HYDROCHLORIDE
     Indication: MULTIPLE SCLEROSIS
     Dosage: 0.5 MG, UNK
     Route: 065
     Dates: start: 201308

REACTIONS (8)
  - Liver function test increased [Not Recovered/Not Resolved]
  - Coeliac disease [Unknown]
  - Iron deficiency anaemia [Unknown]
  - Multiple sclerosis relapse [Unknown]
  - Hepatitis A [Unknown]
  - Central nervous system lesion [Unknown]
  - Atrophy [Unknown]
  - JC polyomavirus test positive [Unknown]

NARRATIVE: CASE EVENT DATE: 2013
